FAERS Safety Report 5870221-X (Version None)
Quarter: 2008Q3

REPORT INFORMATION
  Report Type: 
  Country: None (occurrence: None)
  Receive Date: 20080904
  Receipt Date: 20080822
  Transmission Date: 20090109
  Serious: Yes (Hospitalization, Other)
  Sender: FDA-Public Use
  Company Number: IE-PFIZER INC-2008071947

PATIENT
  Age: 65 Year
  Sex: Female

DRUGS (7)
  1. CHANTIX [Suspect]
     Indication: SMOKING CESSATION THERAPY
     Route: 048
  2. LIPITOR [Concomitant]
  3. ACETYLSALICYLIC ACID SRT [Concomitant]
  4. NEXIUM [Concomitant]
  5. IBUPROFEN [Concomitant]
  6. CARDICOR [Concomitant]
  7. OTHER RESPIRATORY SYSTEM PRODUCTS [Concomitant]
     Route: 055

REACTIONS (6)
  - ABNORMAL BEHAVIOUR [None]
  - AGITATION [None]
  - BLOOD SODIUM DECREASED [None]
  - PARANOIA [None]
  - PHARYNGEAL MASS [None]
  - POLYDIPSIA [None]
